FAERS Safety Report 10014972 (Version 1)
Quarter: 2014Q1

REPORT INFORMATION
  Report Type: Spontaneous
  Country: US (occurrence: US)
  Receive Date: 20140317
  Receipt Date: 20140317
  Transmission Date: 20141002
  Serious: Yes (Other)
  Sender: FDA-Public Use
  Company Number: US-JNJFOC-20140308122

PATIENT
  Age: 61 Year
  Sex: Female
  Weight: 53.07 kg

DRUGS (4)
  1. OLYSIO [Suspect]
     Indication: HEPATITIS C
     Route: 048
     Dates: start: 20140129
  2. SOVALDI [Suspect]
     Indication: HEPATITIS C
     Route: 065
  3. VITAMINS NOS [Concomitant]
     Indication: PRODUCT USED FOR UNKNOWN INDICATION
     Route: 065
  4. ASPIRIN [Concomitant]
     Indication: PRODUCT USED FOR UNKNOWN INDICATION
     Route: 065

REACTIONS (5)
  - Hypothyroidism [Unknown]
  - Blood thyroid stimulating hormone decreased [Unknown]
  - Off label use [Not Recovered/Not Resolved]
  - Low density lipoprotein increased [Unknown]
  - Blood pressure increased [Unknown]
